FAERS Safety Report 22344071 (Version 2)
Quarter: 2023Q2

REPORT INFORMATION
  Report Type: Spontaneous
  Country: MY (occurrence: MY)
  Receive Date: 20230519
  Receipt Date: 20230609
  Transmission Date: 20230722
  Serious: Yes (Other)
  Sender: FDA-Public Use
  Company Number: MY-OTSUKA-2023_012494

PATIENT
  Age: 14 Year
  Weight: 33 kg

DRUGS (2)
  1. ARIPIPRAZOLE [Suspect]
     Active Substance: ARIPIPRAZOLE
     Indication: Schizophrenia
     Dosage: UNK
     Route: 048
  2. OLANZAPINE [Concomitant]
     Active Substance: OLANZAPINE
     Indication: Product use in unapproved indication
     Dosage: UNK
     Route: 048

REACTIONS (1)
  - Schizophrenia [Unknown]
